FAERS Safety Report 9793307 (Version 3)
Quarter: 2014Q1

REPORT INFORMATION
  Report Type: Spontaneous
  Country: US (occurrence: US)
  Receive Date: 20140102
  Receipt Date: 20140227
  Transmission Date: 20141002
  Serious: No
  Sender: FDA-Public Use
  Company Number: US-PFIZER INC-2013374257

PATIENT
  Age: 64 Year
  Sex: Female
  Weight: 78 kg

DRUGS (2)
  1. EXEMESTANE [Suspect]
     Indication: BREAST CANCER STAGE I
     Dosage: 25 MG, 1X/DAY
     Dates: start: 2011
  2. EXEMESTANE [Suspect]
     Indication: HAEMATOPOIETIC NEOPLASM

REACTIONS (6)
  - Pain in extremity [Not Recovered/Not Resolved]
  - Arthralgia [Not Recovered/Not Resolved]
  - Gait disturbance [Not Recovered/Not Resolved]
  - Blood oestrogen decreased [Unknown]
  - Myalgia [Unknown]
  - Bone pain [Unknown]
